FAERS Safety Report 15731154 (Version 1)
Quarter: 2018Q4

REPORT INFORMATION
  Report Type: Spontaneous
  Country: FR (occurrence: FR)
  Receive Date: 20181217
  Receipt Date: 20181217
  Transmission Date: 20190205
  Serious: Yes (Other)
  Sender: FDA-Public Use
  Company Number: FR-MYLANLABS-2018M1092868

PATIENT
  Age: 31 Year
  Sex: Female
  Weight: 90 kg

DRUGS (1)
  1. CIPROFLOXACINE MYLAN 500 MG, COMPRIM? PELLICUL? S?CABLE [Suspect]
     Active Substance: CIPROFLOXACIN
     Indication: INFECTION
     Dosage: 2 DOSAGE FORM, QD
     Route: 048
     Dates: start: 20180327, end: 20180403

REACTIONS (9)
  - Pain in extremity [Recovered/Resolved]
  - Diarrhoea [Recovered/Resolved]
  - Vertigo [Recovered/Resolved]
  - Vision blurred [Recovered/Resolved]
  - Dyspnoea [Recovered/Resolved]
  - Skin burning sensation [Recovered/Resolved]
  - Hyperhidrosis [Recovered/Resolved]
  - Abdominal pain [Recovered/Resolved]
  - Rash [Recovered/Resolved]

NARRATIVE: CASE EVENT DATE: 20180328
